FAERS Safety Report 7118597-X (Version None)
Quarter: 2010Q4

REPORT INFORMATION
  Report Type: 
  Country: None (occurrence: None)
  Receive Date: 20101123
  Receipt Date: 20101110
  Transmission Date: 20110411
  Serious: Yes (Hospitalization, Other)
  Sender: FDA-Public Use
  Company Number: PHHY2010US63441

PATIENT
  Sex: Female
  Weight: 153 kg

DRUGS (7)
  1. VALTURNA [Suspect]
     Dosage: 150/160 MG PER DAY
     Route: 048
  2. VALTURNA [Suspect]
     Dosage: 300/320 MG PER DAY FOR TWO WEEKS
     Route: 048
     Dates: start: 20100825
  3. LORATADINE [Concomitant]
     Indication: HYPERSENSITIVITY
     Dosage: 10 MG
  4. ASTHMA MEDICATION [Concomitant]
  5. METOPROLOL [Concomitant]
     Dosage: 50 MG, BID
     Dates: start: 20101028
  6. RANITIDINE [Concomitant]
     Dosage: 150 MG, BID
     Dates: start: 20100920, end: 20101028
  7. HORMONES NOS [Concomitant]

REACTIONS (11)
  - CHEST PAIN [None]
  - DYSPEPSIA [None]
  - FEELING HOT [None]
  - GASTROOESOPHAGEAL REFLUX DISEASE [None]
  - HORMONE LEVEL ABNORMAL [None]
  - HYPERHIDROSIS [None]
  - HYPERTENSION [None]
  - MYOCARDIAL INFARCTION [None]
  - ORAL PAIN [None]
  - STRESS [None]
  - THROAT TIGHTNESS [None]
